FAERS Safety Report 8837564 (Version 2)
Quarter: 2012Q4

REPORT INFORMATION
  Report Type: 
  Country: US (occurrence: US)
  Receive Date: 20121012
  Receipt Date: 20121120
  Transmission Date: 20130627
  Serious: Yes (Hospitalization)
  Sender: FDA-Public Use
  Company Number: US-PFIZER INC-2012252906

PATIENT
  Sex: Male

DRUGS (1)
  1. ACCURETIC [Suspect]
     Dosage: [quinapril HCl 20 mg]/ [hydrochlorothiazide 25 mg], UNK
     Dates: end: 20120924

REACTIONS (3)
  - Myocardial infarction [Unknown]
  - Blood sodium increased [Unknown]
  - Dyspnoea [Unknown]
